FAERS Safety Report 4293768-9 (Version None)
Quarter: 2004Q1

REPORT INFORMATION
  Report Type: 
  Country: None (occurrence: None)
  Receive Date: 20040211
  Receipt Date: 20040211
  Transmission Date: 20041129
  Serious: Yes (Other)
  Sender: FDA-Public Use
  Company Number: None

PATIENT
  Age: 65 Year
  Sex: Female
  Weight: 122.4712 kg

DRUGS (1)
  1. CYPHER STENT [Suspect]
     Dosage: IMPLANT
     Route: 050
     Dates: start: 20030623

REACTIONS (4)
  - BACK PAIN [None]
  - CARDIAC DISORDER [None]
  - CHEST PAIN [None]
  - POST PROCEDURAL PAIN [None]
